FAERS Safety Report 14160772 (Version 3)
Quarter: 2018Q2

REPORT INFORMATION
  Report Type: Spontaneous
  Country: JP (occurrence: JP)
  Receive Date: 20171106
  Receipt Date: 20180502
  Transmission Date: 20180711
  Serious: Yes (Death, Life-Threatening, Hospitalization, Other)
  Sender: FDA-Public Use
  Company Number: JP-009507513-1707JPN000230J

PATIENT
  Age: 75 Year
  Sex: Male
  Weight: 52 kg

DRUGS (3)
  1. SPIRIVA [Concomitant]
     Active Substance: TIOTROPIUM BROMIDE MONOHYDRATE
     Dosage: 2 DF, QD
     Route: 055
     Dates: end: 20170725
  2. AMBROXOL HYDROCHLORIDE [Concomitant]
     Active Substance: AMBROXOL HYDROCHLORIDE
     Dosage: 15 MG, TID
     Route: 048
     Dates: end: 20170725
  3. KEYTRUDA [Suspect]
     Active Substance: PEMBROLIZUMAB
     Indication: LARGE CELL LUNG CANCER
     Dosage: 200 MG, Q3W
     Route: 041
     Dates: start: 20170613, end: 20170613

REACTIONS (6)
  - Pneumonia [Recovered/Resolved]
  - Venous thrombosis limb [Unknown]
  - Inappropriate antidiuretic hormone secretion [Not Recovered/Not Resolved]
  - Pneumothorax [Fatal]
  - Interstitial lung disease [Recovering/Resolving]
  - Bronchostenosis [Not Recovered/Not Resolved]

NARRATIVE: CASE EVENT DATE: 20170619
